FAERS Safety Report 5410929-3 (Version None)
Quarter: 2007Q3

REPORT INFORMATION
  Report Type: 
  Country: None (occurrence: None)
  Receive Date: 20070809
  Receipt Date: 20070809
  Transmission Date: 20080115
  Serious: Yes (Hospitalization)
  Sender: FDA-Public Use
  Company Number: None

PATIENT
  Age: 31 Day
  Sex: Male

DRUGS (4)
  1. GANCICLOVIR [Suspect]
     Indication: CONGENITAL CYTOMEGALOVIRUS INFECTION
     Dosage: 19 MG BID IV
     Route: 042
     Dates: start: 20060421, end: 20060504
  2. URSODIOL [Concomitant]
  3. RANITIDINE [Concomitant]
  4. PHENOBARBITAL TAB [Concomitant]

REACTIONS (1)
  - NEUTROPENIA [None]
